FAERS Safety Report 15029508 (Version 1)
Quarter: 2018Q2

REPORT INFORMATION
  Report Type: Spontaneous
  Country: US (occurrence: US)
  Receive Date: 20180529
  Receipt Date: 20180529
  Transmission Date: 20180711
  Serious: Yes (Hospitalization)
  Sender: FDA-Public Use
  Company Number: None

PATIENT
  Age: 72 Year
  Sex: Female
  Weight: 55.79 kg

DRUGS (16)
  1. HUMALOG [Concomitant]
     Active Substance: INSULIN LISPRO
  2. LOSARTAN-HCTZ [Concomitant]
     Active Substance: HYDROCHLOROTHIAZIDE\LOSARTAN
  3. ROPINIROLE. [Concomitant]
     Active Substance: ROPINIROLE
  4. VASEPA FISH OIL [Concomitant]
  5. LOWDOSE ASPIRIN [Concomitant]
  6. MULTIVITAMIN [Concomitant]
     Active Substance: VITAMINS
  7. INSULIN PEN [Concomitant]
     Active Substance: INSULIN NOS
  8. FENOFIBRATE. [Concomitant]
     Active Substance: FENOFIBRATE
  9. OTEZLA [Suspect]
     Active Substance: APREMILAST
     Indication: PSORIASIS
     Dosage: ?         2 PILLS DAILY AT AM AND 1 AT PM MOTH
     Route: 048
     Dates: start: 20180125, end: 20180426
  10. TOUJEO [Concomitant]
     Active Substance: INSULIN GLARGINE
  11. LORAZEPAM. [Concomitant]
     Active Substance: LORAZEPAM
  12. PRAVASTATIN. [Concomitant]
     Active Substance: PRAVASTATIN
  13. PROPANOLOL [Concomitant]
     Active Substance: PROPRANOLOL HYDROCHLORIDE
  14. DIABETIC MONITOR [Concomitant]
  15. AMLODIPINE [Concomitant]
     Active Substance: AMLODIPINE BESYLATE
  16. TYLENOL [Concomitant]
     Active Substance: ACETAMINOPHEN

REACTIONS (7)
  - Rhinorrhoea [None]
  - Cough [None]
  - Nasal congestion [None]
  - Pneumonia [None]
  - Upper respiratory tract infection [None]
  - Depression [None]
  - Feeling abnormal [None]

NARRATIVE: CASE EVENT DATE: 20180317
